FAERS Safety Report 6975416-X (Version None)
Quarter: 2010Q3

REPORT INFORMATION
  Report Type: 
  Country: None (occurrence: None)
  Receive Date: 20100910
  Receipt Date: 20100903
  Transmission Date: 20110219
  Serious: Yes (Other)
  Sender: FDA-Public Use
  Company Number: US-BAYER-201032930NA

PATIENT
  Age: 41 Year
  Sex: Female

DRUGS (1)
  1. YAZ [Suspect]
     Indication: PRODUCT USED FOR UNKNOWN INDICATION

REACTIONS (1)
  - PULMONARY EMBOLISM [None]
